FAERS Safety Report 20372856 (Version 1)
Quarter: 2022Q1

REPORT INFORMATION
  Report Type: Report from Study
  Country: CA (occurrence: CA)
  Receive Date: 20220125
  Receipt Date: 20220125
  Transmission Date: 20220423
  Serious: Yes (Other)
  Sender: FDA-Public Use
  Company Number: CA-JNJFOC-20220136572

PATIENT
  Age: 51 Year
  Sex: Male

DRUGS (1)
  1. REMICADE [Suspect]
     Active Substance: INFLIXIMAB
     Indication: Colitis ulcerative
     Route: 042

REACTIONS (4)
  - Blood urine present [Unknown]
  - Renal pain [Unknown]
  - COVID-19 [Not Recovered/Not Resolved]
  - Abdominal pain upper [Not Recovered/Not Resolved]

NARRATIVE: CASE EVENT DATE: 20220116
